FAERS Safety Report 6123556-X (Version None)
Quarter: 2009Q1

REPORT INFORMATION
  Report Type: 
  Country: None (occurrence: None)
  Receive Date: 20090319
  Receipt Date: 20090306
  Transmission Date: 20090719
  Serious: Yes (Hospitalization)
  Sender: FDA-Public Use
  Company Number: DE-RANBAXY-2009RR-22598

PATIENT
  Age: 75 Year
  Sex: Female
  Weight: 88 kg

DRUGS (12)
  1. RAMIPRIL BASICS 5 MG [Suspect]
     Dosage: 1 DF, BID
     Route: 048
     Dates: start: 20070101
  2. KARVEA [Suspect]
     Indication: HYPERTENSION
     Dosage: 1 DF, QD
     Route: 048
     Dates: start: 20071201, end: 20080602
  3. ASPIRIN [Concomitant]
     Indication: PLATELET AGGREGATION INHIBITION
     Dosage: 100 MG, QD
     Route: 048
     Dates: start: 20071201
  4. AMLODIPINE [Concomitant]
     Indication: HYPERTENSION
     Dosage: 20 MG, BID
     Route: 048
     Dates: start: 20080101
  5. FURORESE [Concomitant]
     Indication: HYPERTENSION
     Dosage: 40 MG, QD
     Route: 048
     Dates: start: 20070101
  6. GABAPENTIN [Concomitant]
     Indication: DIABETIC NEUROPATHY
     Dosage: 400 MG, QID
     Route: 048
     Dates: start: 20070101
  7. IBUPROFEN [Concomitant]
     Indication: DIABETIC NEUROPATHY
     Dosage: UNK
     Route: 048
     Dates: start: 20070101
  8. METFORMIN HCL [Concomitant]
     Indication: TYPE 2 DIABETES MELLITUS
     Dosage: 500 MG, QD
     Route: 048
     Dates: start: 20030101
  9. MIRTAZAPINE [Concomitant]
     Indication: DEPRESSION
     Dosage: 30 MG, QD
     Route: 048
     Dates: start: 20080101
  10. OMEBETA [Concomitant]
     Indication: GASTRITIS
     Dosage: 20 MG, BID
     Route: 048
     Dates: start: 20071201
  11. TILIDIN [Concomitant]
     Indication: DIABETIC NEUROPATHY
     Dosage: 1 DF, BID
     Route: 048
  12. VESICARE [Concomitant]
     Indication: URINARY INCONTINENCE
     Dosage: 5 MG, QD
     Route: 048

REACTIONS (1)
  - HYPERKALAEMIA [None]
